FAERS Safety Report 6415660-3 (Version None)
Quarter: 2009Q4

REPORT INFORMATION
  Report Type: 
  Country: None (occurrence: None)
  Receive Date: 20091027
  Receipt Date: 20091019
  Transmission Date: 20100525
  Serious: Yes (Other)
  Sender: FDA-Public Use
  Company Number: US-ROCHE-663979

PATIENT
  Age: 10 Year
  Sex: Male
  Weight: 57.8 kg

DRUGS (1)
  1. TAMIFLU [Suspect]
     Indication: DRUG USE FOR UNKNOWN INDICATION
     Dosage: FREQ:DAILY
     Route: 048
     Dates: start: 20091009, end: 20091016

REACTIONS (1)
  - HALLUCINATION, AUDITORY [None]
